FAERS Safety Report 15305369 (Version 1)
Quarter: 2018Q3

REPORT INFORMATION
  Report Type: Spontaneous
  Country: US (occurrence: US)
  Receive Date: 20180810
  Receipt Date: 20180810
  Transmission Date: 20181010
  Serious: Yes (Other)
  Sender: FDA-Public Use
  Company Number: None

PATIENT
  Age: 69 Year
  Sex: Female
  Weight: 74.25 kg

DRUGS (4)
  1. DIURETIC MED [Concomitant]
  2. PRILOSEC [Concomitant]
     Active Substance: OMEPRAZOLE MAGNESIUM
  3. CHANTIX [Suspect]
     Active Substance: VARENICLINE TARTRATE
     Indication: SMOKING CESSATION THERAPY
  4. POTASSIUM [Concomitant]
     Active Substance: POTASSIUM

REACTIONS (3)
  - Vomiting [None]
  - Constipation [None]
  - Nausea [None]

NARRATIVE: CASE EVENT DATE: 20180810
